FAERS Safety Report 4863248-8 (Version None)
Quarter: 2005Q4

REPORT INFORMATION
  Report Type: 
  Country: None (occurrence: None)
  Receive Date: 20051219
  Receipt Date: 20051205
  Transmission Date: 20060501
  Serious: Yes (Other)
  Sender: FDA-Public Use
  Company Number: 2005165502

PATIENT
  Age: 43 Year
  Sex: Female
  Weight: 57.6068 kg

DRUGS (2)
  1. ESTRING [Suspect]
     Indication: VULVOVAGINAL DRYNESS
     Dosage: (EVERY 3 MONTHS), VAGINAL
     Route: 067
     Dates: start: 20050101
  2. ESTRING [Suspect]
     Indication: VULVOVAGINAL DRYNESS
     Dosage: (EVERY 3 MONTHS), VAGINAL
     Route: 067
     Dates: start: 20051009

REACTIONS (5)
  - CONDITION AGGRAVATED [None]
  - DEVICE FAILURE [None]
  - OVARIAN CYST [None]
  - PHARMACEUTICAL PRODUCT COMPLAINT [None]
  - VULVOVAGINAL DRYNESS [None]
